FAERS Safety Report 8458062-0 (Version None)
Quarter: 2012Q2

REPORT INFORMATION
  Report Type: 
  Country: None (occurrence: None)
  Receive Date: 20120615
  Receipt Date: 20120611
  Transmission Date: 20120825
  Serious: Yes (Hospitalization, Other)
  Sender: FDA-Public Use
  Company Number: AUR-APL-2012-02602

PATIENT
  Age: 72 Year
  Sex: Female

DRUGS (9)
  1. QUININE SULFATE [Concomitant]
  2. SENNA-MINT WAF [Concomitant]
  3. LACTULOSE [Concomitant]
  4. OMEPRAZOLE [Concomitant]
  5. RAMIPRIL [Concomitant]
  6. FOSTAIR (BECLOMETASONE DIPROPIONATE) [Concomitant]
  7. NAPROXEN [Suspect]
     Indication: PRODUCT USED FOR UNKNOWN INDICATION
     Dosage: 1000 MG (500 MG, 2 IN 1 D), ORAL
     Route: 048
     Dates: start: 20111221, end: 20120520
  8. ALBUTEROL SULFATE [Concomitant]
  9. BENDROFLUMETHIAZIDE (BENDROFLUMETHIAZIDE) [Concomitant]

REACTIONS (4)
  - HAEMATEMESIS [None]
  - MELAENA [None]
  - DUODENAL ULCER [None]
  - HAEMOGLOBIN DECREASED [None]
